FAERS Safety Report 18188338 (Version 2)
Quarter: 2020Q3

REPORT INFORMATION
  Report Type: Report from Study
  Country: US (occurrence: US)
  Receive Date: 20200824
  Receipt Date: 20200916
  Transmission Date: 20201103
  Serious: Yes (Hospitalization)
  Sender: FDA-Public Use
  Company Number: US-PFIZER INC-2020242137

PATIENT
  Age: 44 Year
  Sex: Female
  Weight: 101.4 kg

DRUGS (3)
  1. PF?05212384 [Suspect]
     Active Substance: GEDATOLISIB
     Indication: BREAST CANCER METASTATIC
     Dosage: 150 MG, CYCLIC (ON DAYS 1, 8, 15, 22 OF EACH 28 DAYS CYCLE)
     Route: 042
     Dates: start: 20180604, end: 20200602
  2. LETROZOLE. [Suspect]
     Active Substance: LETROZOLE
     Indication: BREAST CANCER METASTATIC
     Dosage: 2.5 MG, ONCE DAILY CONTINOUS
     Route: 048
     Dates: start: 20180604
  3. PALBOCICLIB [Suspect]
     Active Substance: PALBOCICLIB
     Indication: BREAST CANCER METASTATIC
     Dosage: 100 MG, CYCLIC (ONCE DAILY FOR 21 DAYS ON/7 DAYS OFF FOR EACH 28?DAY CYCLE)
     Route: 048
     Dates: start: 20180604, end: 20200602

REACTIONS (2)
  - Lung opacity [Recovered/Resolved with Sequelae]
  - Pyrexia [Recovered/Resolved]

NARRATIVE: CASE EVENT DATE: 20200620
